FAERS Safety Report 9459431 (Version 2)
Quarter: 2013Q4

REPORT INFORMATION
  Report Type: Report from Study
  Country: US (occurrence: US)
  Receive Date: 20130815
  Receipt Date: 20131014
  Transmission Date: 20140711
  Serious: Yes (Other)
  Sender: FDA-Public Use
  Company Number: US-ROCHE-1262142

PATIENT
  Age: 53 Year
  Sex: Female

DRUGS (5)
  1. LUCENTIS [Suspect]
     Indication: RETINAL VEIN OCCLUSION
     Dosage: ^MOST RECENT DOSE ON 06AUG2013
     Route: 065
  2. LUCENTIS [Suspect]
     Indication: CYSTOID MACULAR OEDEMA
  3. AVASTIN [Suspect]
     Indication: RETINAL VEIN OCCLUSION
     Dosage: MOST RECENT DOSE ON 14/MAR/2013.
     Route: 065
  4. AVASTIN [Suspect]
     Indication: CYSTOID MACULAR OEDEMA
  5. LISINOPRIL [Concomitant]

REACTIONS (4)
  - Eye irritation [Unknown]
  - Visual impairment [Unknown]
  - Eye pain [Unknown]
  - Headache [Not Recovered/Not Resolved]
